FAERS Safety Report 6388546-0 (Version None)
Quarter: 2009Q3

REPORT INFORMATION
  Report Type: 
  Country: None (occurrence: None)
  Receive Date: 20090930
  Receipt Date: 20090923
  Transmission Date: 20100115
  Serious: Yes (Death, Hospitalization)
  Sender: FDA-Public Use
  Company Number: ENTC2009-0300

PATIENT
  Age: 74 Year
  Sex: Female

DRUGS (2)
  1. STALEVO 100 [Suspect]
     Indication: PARKINSON'S DISEASE
     Dosage: 2 TABLETS (50/12.5/200 MG) PER DAY I TABLET DAILY
     Route: 048
     Dates: start: 20060701, end: 20081201
  2. STALEVO 100 [Suspect]
     Indication: PARKINSON'S DISEASE
     Dosage: 2 TABLETS (50/12.5/200 MG) PER DAY I TABLET DAILY
     Route: 048
     Dates: start: 20081201

REACTIONS (2)
  - PNEUMONIA [None]
  - URINARY TRACT INFECTION [None]
